FAERS Safety Report 5789126-8 (Version None)
Quarter: 2008Q2

REPORT INFORMATION
  Report Type: 
  Country: None (occurrence: None)
  Receive Date: 20080626
  Receipt Date: 20080616
  Transmission Date: 20081010
  Serious: Yes (Other)
  Sender: FDA-Public Use
  Company Number: US-JNJFOC-20080604566

PATIENT
  Sex: Female
  Weight: 74.84 kg

DRUGS (2)
  1. FENTANYL TRANSDERMAL SYSTEM [Suspect]
     Indication: BACK PAIN
     Route: 062
  2. UNSPECIFIED PAIN MEDICATION [Concomitant]
     Indication: PAIN
     Route: 048

REACTIONS (3)
  - APPLICATION SITE IRRITATION [None]
  - APPLICATION SITE RASH [None]
  - INTERVERTEBRAL DISC PROTRUSION [None]
